FAERS Safety Report 8227136-1 (Version None)
Quarter: 2012Q1

REPORT INFORMATION
  Report Type: 
  Country: None (occurrence: None)
  Receive Date: 20120322
  Receipt Date: 20120319
  Transmission Date: 20120608
  Serious: Yes (Life-Threatening)
  Sender: FDA-Public Use
  Company Number: CN-JNJFOC-20120309357

PATIENT
  Age: 76 Year
  Sex: Male

DRUGS (2)
  1. SPORANOX [Suspect]
     Indication: LUNG INFECTION
     Route: 042
     Dates: start: 20120314, end: 20120314
  2. SPORANOX [Suspect]
     Route: 042
     Dates: start: 20120315, end: 20120315

REACTIONS (2)
  - SHOCK [None]
  - HYPOTENSION [None]
